FAERS Safety Report 10655679 (Version 1)
Quarter: 2014Q4

REPORT INFORMATION
  Report Type: Spontaneous
  Country: GB (occurrence: GB)
  Receive Date: 20141216
  Receipt Date: 20141216
  Transmission Date: 20150529
  Serious: Yes (Hospitalization, Other)
  Sender: FDA-Public Use
  Company Number: GB-BAYER-2014-183297

PATIENT
  Sex: Male
  Weight: 1.83 kg

DRUGS (16)
  1. VITAMIN D [Concomitant]
     Active Substance: CHOLECALCIFEROL
     Route: 064
  2. ACETYLSALICYLIC ACID({=100 MG) [Suspect]
     Active Substance: ASPIRIN
     Indication: PROPHYLAXIS
  3. CABERGOLINE. [Concomitant]
     Active Substance: CABERGOLINE
     Indication: PROLACTINOMA
     Dosage: UNTIL 9 WEEKS OF GESTATION
     Route: 064
  4. METFORMIN [Concomitant]
     Active Substance: METFORMIN HYDROCHLORIDE
     Indication: INSULIN RESISTANCE
     Route: 064
  5. OMEPRAZOLE. [Suspect]
     Active Substance: OMEPRAZOLE
     Indication: GASTRINOMA
     Route: 064
  6. OMEPRAZOLE. [Suspect]
     Active Substance: OMEPRAZOLE
     Indication: GASTRINOMA
     Route: 064
  7. ACETYLSALICYLIC ACID({=100 MG) [Suspect]
     Active Substance: ASPIRIN
     Indication: PRE-ECLAMPSIA
     Dosage: UNTIL DURING SECOND TRIMESTER
     Route: 064
  8. ERGOCALCIFEROL. [Concomitant]
     Active Substance: ERGOCALCIFEROL
     Route: 064
  9. LEVOTHYROXINE [Concomitant]
     Active Substance: LEVOTHYROXINE
     Indication: SECONDARY HYPOTHYROIDISM
     Route: 064
  10. ACETYLSALICYLIC ACID({=100 MG) [Suspect]
     Active Substance: ASPIRIN
     Indication: PROPHYLAXIS
  11. LEVOTHYROXINE [Concomitant]
     Active Substance: LEVOTHYROXINE
     Indication: SECONDARY HYPOTHYROIDISM
     Route: 064
  12. VITAMIN D [Concomitant]
     Active Substance: CHOLECALCIFEROL
     Route: 064
  13. ACETYLSALICYLIC ACID({=100 MG) [Suspect]
     Active Substance: ASPIRIN
     Indication: PRE-ECLAMPSIA
     Dosage: UNTIL DURING SECOND TRIMESTER
     Route: 064
  14. CABERGOLINE. [Concomitant]
     Active Substance: CABERGOLINE
     Indication: PROLACTINOMA
     Dosage: UNTIL 9 WEEKS OF GESTATION
     Route: 064
  15. ERGOCALCIFEROL. [Concomitant]
     Active Substance: ERGOCALCIFEROL
     Route: 064
  16. METFORMIN [Concomitant]
     Active Substance: METFORMIN HYDROCHLORIDE
     Indication: INSULIN RESISTANCE
     Route: 064

REACTIONS (4)
  - Premature baby [None]
  - Hypocalcaemia [None]
  - Low birth weight baby [None]
  - Foetal exposure timing unspecified [None]
